FAERS Safety Report 4984866-2 (Version None)
Quarter: 2006Q2

REPORT INFORMATION
  Report Type: 
  Country: None (occurrence: None)
  Receive Date: 20060426
  Receipt Date: 20060426
  Transmission Date: 20061013
  Serious: No
  Sender: FDA-Public Use
  Company Number: None

PATIENT
  Age: 63 Year
  Sex: Female
  Weight: 72.5755 kg

DRUGS (2)
  1. LIPITOR [Suspect]
     Indication: HYPERCHOLESTEROLAEMIA
     Dosage: 10MG  DAILY  PO
     Route: 048
     Dates: start: 20030426, end: 20050228
  2. LIPITOR [Suspect]
     Indication: HYPERCHOLESTEROLAEMIA
     Dosage: 10MG  DAILY  PO
     Route: 048
     Dates: start: 20050604, end: 20060113

REACTIONS (7)
  - ASTHENIA [None]
  - FATIGUE [None]
  - JOINT STIFFNESS [None]
  - LIGAMENT DISORDER [None]
  - MUSCLE SPASMS [None]
  - MYALGIA [None]
  - PAIN [None]
